FAERS Safety Report 8214510-2 (Version None)
Quarter: 2012Q1

REPORT INFORMATION
  Report Type: 
  Country: None (occurrence: None)
  Receive Date: 20120316
  Receipt Date: 20120316
  Transmission Date: 20120608
  Serious: Yes (Disabling, Other)
  Sender: FDA-Public Use
  Company Number: None

PATIENT
  Age: 32 Year
  Sex: Male
  Weight: 95.254 kg

DRUGS (1)
  1. BACTRIM [Suspect]
     Indication: ABSCESS
     Dosage: 2 TABLETS BID
     Dates: start: 20120302, end: 20120307

REACTIONS (3)
  - BIPOLAR I DISORDER [None]
  - ACTIVITIES OF DAILY LIVING IMPAIRED [None]
  - INSOMNIA [None]
